FAERS Safety Report 20013975 (Version 3)
Quarter: 2022Q2

REPORT INFORMATION
  Report Type: Report from Study
  Country: JP (occurrence: JP)
  Receive Date: 20211029
  Receipt Date: 20220506
  Transmission Date: 20220721
  Serious: Yes (Life-Threatening)
  Sender: FDA-Public Use
  Company Number: JP-JNJFOC-20210908431

PATIENT
  Age: 51 Year
  Sex: Female

DRUGS (7)
  1. TRACLEER [Suspect]
     Active Substance: BOSENTAN
     Indication: Skin ulcer
     Route: 048
     Dates: start: 20210122, end: 20210126
  2. TRACLEER [Suspect]
     Active Substance: BOSENTAN
     Dosage: IN THE MORNING AND EVENING
     Route: 048
     Dates: start: 20210127, end: 20210218
  3. ICOSAPENT ETHYL [Concomitant]
     Active Substance: ICOSAPENT ETHYL
     Indication: Systemic scleroderma
     Route: 048
     Dates: start: 20210105
  4. TOKISHIGYAKUKAGOSHUYUSHOKYOTO [Concomitant]
     Indication: Systemic scleroderma
     Route: 048
     Dates: start: 20210105
  5. AMLODIPINE [Concomitant]
     Active Substance: AMLODIPINE BESYLATE
     Indication: Systemic scleroderma
     Route: 048
     Dates: start: 20210105
  6. SARPOGRELATE HYDROCHLORIDE [Concomitant]
     Active Substance: SARPOGRELATE HYDROCHLORIDE
     Indication: Systemic scleroderma
     Route: 048
     Dates: start: 20210105
  7. BERAPROST SODIUM [Concomitant]
     Active Substance: BERAPROST SODIUM
     Indication: Systemic scleroderma
     Route: 048
     Dates: start: 20210105

REACTIONS (1)
  - Hepatic function abnormal [Recovered/Resolved]

NARRATIVE: CASE EVENT DATE: 20210218
